FAERS Safety Report 5398274-6 (Version None)
Quarter: 2007Q3

REPORT INFORMATION
  Report Type: 
  Country: None (occurrence: None)
  Receive Date: 20070724
  Receipt Date: 20070716
  Transmission Date: 20080115
  Serious: Yes (Other)
  Sender: FDA-Public Use
  Company Number: 2007326703

PATIENT
  Sex: Male

DRUGS (1)
  1. VISINE EYE DROPS [Suspect]
     Dosage: 1/2 BOTTLE ONCE, OPHTHALMIC
     Route: 047

REACTIONS (2)
  - INCORRECT ROUTE OF DRUG ADMINISTRATION [None]
  - INTENTIONAL DRUG MISUSE [None]
